FAERS Safety Report 11707568 (Version 1)
Quarter: 2015Q4

REPORT INFORMATION
  Report Type: Spontaneous
  Country: FR (occurrence: FR)
  Receive Date: 20151106
  Receipt Date: 20151106
  Transmission Date: 20160304
  Serious: Yes (Hospitalization)
  Sender: FDA-Public Use
  Company Number: FR-ABBVIE-15P-056-1496500-00

PATIENT
  Age: 70 Year
  Sex: Female

DRUGS (4)
  1. DEPAKOTE [Suspect]
     Active Substance: DIVALPROEX SODIUM
     Indication: BIPOLAR DISORDER
     Route: 048
  2. HALDOL [Suspect]
     Active Substance: HALOPERIDOL
     Indication: DELIRIUM
     Route: 048
     Dates: start: 20151013, end: 20151019
  3. XEROQUEL [Suspect]
     Active Substance: QUETIAPINE FUMARATE
     Indication: BIPOLAR DISORDER
     Route: 048
  4. LYSANXIA [Suspect]
     Active Substance: PRAZEPAM
     Indication: ANXIETY
     Route: 048

REACTIONS (3)
  - Hypoglycaemia [Unknown]
  - Anal sphincter atony [Unknown]
  - Thrombocytopenia [Unknown]

NARRATIVE: CASE EVENT DATE: 20151014
